FAERS Safety Report 15725101 (Version 2)
Quarter: 2019Q1

REPORT INFORMATION
  Report Type: Spontaneous
  Country: RS (occurrence: RS)
  Receive Date: 20181215
  Receipt Date: 20190111
  Transmission Date: 20190417
  Serious: Yes (Other)
  Sender: FDA-Public Use
  Company Number: RS-ROCHE-2230927

PATIENT
  Sex: Female

DRUGS (2)
  1. NOLVADEX [Concomitant]
     Active Substance: TAMOXIFEN CITRATE
     Indication: BREAST CANCER
  2. HERCEPTIN [Suspect]
     Active Substance: TRASTUZUMAB
     Indication: BREAST CANCER
     Dosage: LAST DOSE OF HERCEPTIN PRIOR TO ADVERSE EVENT EJECTION FRACTION DECREASED WAS ON 13/NOV/2018
     Route: 058
     Dates: end: 20181203

REACTIONS (3)
  - Choking [Unknown]
  - Ejection fraction decreased [Unknown]
  - Fatigue [Unknown]

NARRATIVE: CASE EVENT DATE: 20181203
